FAERS Safety Report 4543628-0 (Version None)
Quarter: 2005Q1

REPORT INFORMATION
  Report Type: 
  Country: None (occurrence: None)
  Receive Date: 20050103
  Receipt Date: 20041112
  Transmission Date: 20050727
  Serious: Yes (Life-Threatening, Hospitalization)
  Sender: FDA-Public Use
  Company Number: DE-GLAXOSMITHKLINE-D0045200A

PATIENT
  Age: 7 Week
  Sex: Male
  Weight: 4.6 kg

DRUGS (4)
  1. FORTUM [Suspect]
     Indication: PYELONEPHRITIS
     Dosage: 200MG SINGLE DOSE
     Route: 042
     Dates: start: 20041111, end: 20041111
  2. MEROPENEM [Concomitant]
     Indication: PYELONEPHRITIS
     Route: 065
     Dates: start: 20040101, end: 20040101
  3. VIGANTOLETTEN [Concomitant]
     Indication: PROPHYLAXIS
     Dosage: 500IU PER DAY
     Route: 048
     Dates: start: 20040101
  4. FERROSANOL [Concomitant]
     Indication: ANAEMIA
     Dosage: 4DROP TWICE PER DAY
     Route: 048
     Dates: start: 20040101

REACTIONS (6)
  - ANAPHYLACTIC REACTION [None]
  - DRUG TOXICITY [None]
  - HYPOTONIA [None]
  - OXYGEN SATURATION DECREASED [None]
  - POOR PERIPHERAL CIRCULATION [None]
  - TACHYCARDIA [None]
